FAERS Safety Report 11839606 (Version 2)
Quarter: 2015Q4

REPORT INFORMATION
  Report Type: Spontaneous
  Country: US (occurrence: US)
  Receive Date: 20151216
  Receipt Date: 20151217
  Transmission Date: 20160305
  Serious: Yes (Disabling, Other)
  Sender: FDA-Public Use
  Company Number: US-JNJFOC-20151203940

PATIENT
  Age: 7 Year
  Sex: Female

DRUGS (2)
  1. CHILDRENS MOTRIN [Suspect]
     Active Substance: IBUPROFEN
     Route: 065
  2. CHILDRENS MOTRIN [Suspect]
     Active Substance: IBUPROFEN
     Indication: PRODUCT USED FOR UNKNOWN INDICATION
     Dosage: MULTIPLE DOSES.
     Route: 065
     Dates: start: 2003

REACTIONS (5)
  - Stevens-Johnson syndrome [Unknown]
  - Product label issue [Unknown]
  - Skin disorder [Unknown]
  - Toxic epidermal necrolysis [Unknown]
  - Blindness [Unknown]

NARRATIVE: CASE EVENT DATE: 2003
